FAERS Safety Report 8275190-3 (Version None)
Quarter: 2012Q2

REPORT INFORMATION
  Report Type: 
  Country: None (occurrence: None)
  Receive Date: 20120411
  Receipt Date: 20120405
  Transmission Date: 20120825
  Serious: Yes (Life-Threatening, Other)
  Sender: FDA-Public Use
  Company Number: JP-PFIZER INC-2012063245

PATIENT
  Age: 40 Year
  Sex: Female
  Weight: 46 kg

DRUGS (2)
  1. FOSPHENYTOIN SODIUM [Suspect]
     Indication: CONVULSION PROPHYLAXIS
     Dosage: 750 MG X 1/30 MIN
     Route: 042
     Dates: start: 20120306, end: 20120306
  2. FOSPHENYTOIN SODIUM [Suspect]
     Indication: SURGERY

REACTIONS (2)
  - BLOOD PRESSURE DECREASED [None]
  - RESPIRATORY ARREST [None]
